FAERS Safety Report 6034922-5 (Version None)
Quarter: 2009Q1

REPORT INFORMATION
  Report Type: 
  Country: None (occurrence: None)
  Receive Date: 20090112
  Receipt Date: 20090108
  Transmission Date: 20090719
  Serious: Yes (Hospitalization)
  Sender: FDA-Public Use
  Company Number: IT-ASTRAZENECA-2009SE00242

PATIENT
  Age: 20957 Day
  Sex: Male

DRUGS (1)
  1. SEROQUEL [Suspect]
     Indication: DEPRESSION
     Route: 048
     Dates: start: 20081130, end: 20081211

REACTIONS (2)
  - HYPOTENSION [None]
  - TRANSIENT ISCHAEMIC ATTACK [None]
